FAERS Safety Report 7428710-2 (Version None)
Quarter: 2011Q2

REPORT INFORMATION
  Report Type: 
  Country: None (occurrence: None)
  Receive Date: 20110415
  Receipt Date: 20110415
  Transmission Date: 20111010
  Serious: Yes (Hospitalization)
  Sender: FDA-Public Use
  Company Number: None

PATIENT
  Sex: Male
  Weight: 84.8226 kg

DRUGS (1)
  1. DRONEDARONE HCL [Suspect]
     Dosage: 400MG TWICE DAILY PO
     Route: 048

REACTIONS (4)
  - ACTIVATED PARTIAL THROMBOPLASTIN TIME PROLONGED [None]
  - ALANINE AMINOTRANSFERASE INCREASED [None]
  - SYNCOPE [None]
  - ASPARTATE AMINOTRANSFERASE INCREASED [None]
